FAERS Safety Report 7876812-9 (Version None)
Quarter: 2011Q4

REPORT INFORMATION
  Report Type: 
  Country: None (occurrence: None)
  Receive Date: 20111031
  Receipt Date: 20111018
  Transmission Date: 20120403
  Serious: Yes (Hospitalization)
  Sender: FDA-Public Use
  Company Number: PHHY2011US54133

PATIENT
  Sex: Male

DRUGS (6)
  1. GLEEVEC [Suspect]
     Dosage: 800 MG, UNK
     Route: 048
  2. HYDROCODONE BITARTRATE [Concomitant]
     Indication: PAIN
     Route: 048
  3. GLEEVEC [Suspect]
     Dosage: 800 MG, UNK
     Route: 048
     Dates: start: 20110624
  4. GLEEVEC [Suspect]
     Indication: GASTROINTESTINAL NEOPLASM
     Dosage: 400 MG, DAILY
     Route: 048
     Dates: start: 20040901
  5. GLEEVEC [Suspect]
     Dosage: 400 MG (TWO OR THREE OSES PER WEEK)
     Route: 048
  6. GLEEVEC [Suspect]
     Dosage: 400 MG (FOR THREE WEEKS)
     Route: 048

REACTIONS (24)
  - ABDOMINAL PAIN [None]
  - PAIN [None]
  - COUGH [None]
  - VOLVULUS [None]
  - GASTROOESOPHAGEAL REFLUX DISEASE [None]
  - HEPATIC MASS [None]
  - POSITRON EMISSION TOMOGRAM ABNORMAL [None]
  - LIVER PALPABLE SUBCOSTAL [None]
  - ASTHMA [None]
  - HEPATIC NECROSIS [None]
  - DIZZINESS [None]
  - NEOPLASM PROGRESSION [None]
  - HEPATOMEGALY [None]
  - METASTASES TO LIVER [None]
  - WHEEZING [None]
  - MUSCULAR WEAKNESS [None]
  - INTESTINAL OBSTRUCTION [None]
  - BLOOD CREATININE INCREASED [None]
  - ARTHRALGIA [None]
  - ABDOMINAL DISTENSION [None]
  - DYSPNOEA [None]
  - HYPERMETABOLISM [None]
  - BLOOD GLUCOSE INCREASED [None]
  - HEADACHE [None]
